FAERS Safety Report 8081897-3 (Version None)
Quarter: 2012Q1

REPORT INFORMATION
  Report Type: 
  Country: None (occurrence: None)
  Receive Date: 20120130
  Receipt Date: 20120119
  Transmission Date: 20120608
  Serious: Yes (Hospitalization)
  Sender: FDA-Public Use
  Company Number: SE-ELI_LILLY_AND_COMPANY-SE201201006466

PATIENT
  Sex: Female

DRUGS (2)
  1. ALIMTA [Suspect]
     Dosage: UNK, UNKNOWN
  2. CISPLATIN [Concomitant]

REACTIONS (2)
  - PULMONARY OEDEMA [None]
  - NEOPLASM MALIGNANT [None]
